FAERS Safety Report 6458598-8 (Version None)
Quarter: 2009Q4

REPORT INFORMATION
  Report Type: 
  Country: None (occurrence: None)
  Receive Date: 20091126
  Receipt Date: 20091124
  Transmission Date: 20100525
  Serious: Yes (Death, Hospitalization, Other)
  Sender: FDA-Public Use
  Company Number: US-ABBOTT-09P-163-0499334-00

PATIENT
  Age: 42 Year
  Sex: Female

DRUGS (17)
  1. RITONAVIR SOFT GELATIN CAPSULES [Suspect]
     Indication: HIV INFECTION
     Route: 048
     Dates: start: 20080805
  2. RITONAVIR SOFT GELATIN CAPSULES [Suspect]
     Dates: start: 20081106
  3. PREZISTA [Concomitant]
     Indication: HIV INFECTION
     Route: 048
     Dates: start: 20080805, end: 20080828
  4. PREZISTA [Concomitant]
     Dates: start: 20081106
  5. ETRAVIRINE [Concomitant]
     Indication: HIV INFECTION
     Route: 048
     Dates: start: 20080805, end: 20080911
  6. ETRAVIRINE [Concomitant]
     Dates: start: 20081106
  7. RALTEGRAVIR [Concomitant]
     Indication: HIV INFECTION
     Dates: start: 20080805
  8. RALTEGRAVIR [Concomitant]
     Dates: start: 20081106
  9. ZIDOVUDINE [Concomitant]
     Indication: HIV INFECTION
     Dates: start: 20080805
  10. ZIDOVUDINE [Concomitant]
     Dates: start: 20081106, end: 20081209
  11. TRUVADA [Concomitant]
     Indication: HIV INFECTION
     Dates: start: 20080805
  12. TRUVADA [Concomitant]
     Dates: start: 20081106
  13. DELSYM [Concomitant]
     Indication: COUGH
  14. DEXAMETHASONE NEO [Concomitant]
     Indication: DRUG USE FOR UNKNOWN INDICATION
  15. COMPAZINE [Concomitant]
     Indication: DRUG USE FOR UNKNOWN INDICATION
  16. POTASSIUM CHLORIDE [Concomitant]
     Indication: DRUG USE FOR UNKNOWN INDICATION
  17. DESYREL [Concomitant]
     Indication: DRUG USE FOR UNKNOWN INDICATION

REACTIONS (52)
  - ACTIVATED PARTIAL THROMBOPLASTIN TIME PROLONGED [None]
  - AGITATION [None]
  - ALANINE AMINOTRANSFERASE INCREASED [None]
  - ALVEOLITIS ALLERGIC [None]
  - ASPARTATE AMINOTRANSFERASE INCREASED [None]
  - ASTHENIA [None]
  - AUTOIMMUNE DISORDER [None]
  - BLOOD BILIRUBIN INCREASED [None]
  - CHEILITIS [None]
  - CONFUSIONAL STATE [None]
  - DECREASED APPETITE [None]
  - DEHYDRATION [None]
  - DEPRESSION [None]
  - DIARRHOEA [None]
  - DYSPNOEA EXERTIONAL [None]
  - ENCEPHALOPATHY [None]
  - FAILURE TO THRIVE [None]
  - GASTRIC ULCER [None]
  - GASTROINTESTINAL DISORDER [None]
  - GASTROINTESTINAL MUCOSAL DISORDER [None]
  - GASTROOESOPHAGEAL REFLUX DISEASE [None]
  - HEPATOMEGALY [None]
  - HEPATOTOXICITY [None]
  - HIATUS HERNIA [None]
  - HYDRONEPHROSIS [None]
  - HYPERKALAEMIA [None]
  - HYPERNATRAEMIA [None]
  - HYPERSENSITIVITY [None]
  - HYPOTENSION [None]
  - HYPOVOLAEMIA [None]
  - IMMUNE RECONSTITUTION SYNDROME [None]
  - LICHENOID KERATOSIS [None]
  - LIPASE INCREASED [None]
  - NAUSEA [None]
  - NEUTROPENIA [None]
  - OCULAR ICTERUS [None]
  - OESOPHAGEAL CANDIDIASIS [None]
  - PANCREATITIS [None]
  - PANCYTOPENIA [None]
  - PNEUMOCYSTIS JIROVECI PNEUMONIA [None]
  - PNEUMONIA [None]
  - PYREXIA [None]
  - RASH [None]
  - RASH MACULO-PAPULAR [None]
  - RENAL FAILURE [None]
  - RENAL TUBULAR NECROSIS [None]
  - RESPIRATORY DISTRESS [None]
  - THROMBOCYTOPENIA [None]
  - TUBULOINTERSTITIAL NEPHRITIS [None]
  - URTICARIA [None]
  - VOMITING [None]
  - WEIGHT DECREASED [None]
